FAERS Safety Report 13372310 (Version 1)
Quarter: 2017Q1

REPORT INFORMATION
  Report Type: Spontaneous
  Country: IL (occurrence: IL)
  Receive Date: 20170327
  Receipt Date: 20170327
  Transmission Date: 20170429
  Serious: Yes (Hospitalization)
  Sender: FDA-Public Use
  Company Number: IL-ACCORD-049563

PATIENT
  Age: 31 Year
  Sex: Female

DRUGS (3)
  1. METHYLDOPA. [Suspect]
     Active Substance: METHYLDOPA
     Indication: HYPERTENSION
  2. FUROSEMIDE. [Suspect]
     Active Substance: FUROSEMIDE
     Indication: HYPERTENSION
  3. HYDRALAZINE [Suspect]
     Active Substance: HYDRALAZINE HYDROCHLORIDE
     Indication: HYPERTENSION

REACTIONS (5)
  - Maternal exposure during pregnancy [Unknown]
  - Haemorrhage [Unknown]
  - Dyspnoea [Unknown]
  - Asthenia [Unknown]
  - Oliguria [Unknown]
